FAERS Safety Report 8930487 (Version 2)
Quarter: 2014Q3

REPORT INFORMATION
  Report Type: Spontaneous
  Country: US (occurrence: US)
  Receive Date: 20121128
  Receipt Date: 20140827
  Transmission Date: 20150326
  Serious: Yes (Hospitalization, Other)
  Sender: FDA-Public Use
  Company Number: US-009507513-2012SP006354

PATIENT
  Sex: Female
  Weight: 85.71 kg

DRUGS (1)
  1. NUVARING [Suspect]
     Active Substance: ETHINYL ESTRADIOL\ETONOGESTREL
     Indication: CONTRACEPTION
     Route: 067
     Dates: start: 2007, end: 20100203

REACTIONS (11)
  - Gastrooesophageal reflux disease [Unknown]
  - Pyrexia [Unknown]
  - Back pain [Unknown]
  - Thyroid neoplasm [Unknown]
  - Haemangioma of liver [Unknown]
  - Pulmonary embolism [Unknown]
  - Pulmonary infarction [Unknown]
  - Pleuritic pain [Unknown]
  - Left ventricular hypertrophy [Unknown]
  - Dizziness [Unknown]
  - Palpitations [Unknown]

NARRATIVE: CASE EVENT DATE: 200911
